FAERS Safety Report 20141595 (Version 1)
Quarter: 2021Q4

REPORT INFORMATION
  Report Type: Spontaneous
  Country: None (occurrence: US)
  Receive Date: 20211202
  Receipt Date: 20211202
  Transmission Date: 20220304
  Serious: No
  Sender: FDA-Public Use
  Company Number: US-Wellstat Therapeutics Corporation-2122611

PATIENT
  Age: 53 Year
  Sex: Female
  Weight: 40 kg

DRUGS (2)
  1. VISTOGARD [Suspect]
     Active Substance: URIDINE TRIACETATE
     Indication: Chemotherapy toxicity attenuation
     Route: 048
     Dates: start: 20210306, end: 20210307
  2. FLUOROURACIL [Concomitant]
     Active Substance: FLUOROURACIL
     Route: 065
     Dates: start: 2021

REACTIONS (5)
  - Vomiting [Recovered/Resolved]
  - Diarrhoea [Recovering/Resolving]
  - Abdominal pain [Recovering/Resolving]
  - Dehydration [Recovering/Resolving]
  - Fatigue [Recovering/Resolving]

NARRATIVE: CASE EVENT DATE: 20210306
